FAERS Safety Report 16496689 (Version 1)
Quarter: 2019Q2

REPORT INFORMATION
  Report Type: Spontaneous
  Country: US (occurrence: US)
  Receive Date: 20190628
  Receipt Date: 20190628
  Transmission Date: 20190711
  Serious: No
  Sender: FDA-Public Use
  Company Number: US-TEVA-2019-US-1059095

PATIENT
  Sex: Female
  Weight: 48 kg

DRUGS (6)
  1. ADVAIR HFA [Concomitant]
     Active Substance: FLUTICASONE PROPIONATE\SALMETEROL XINAFOATE
  2. SPIRIVA [Concomitant]
     Active Substance: TIOTROPIUM BROMIDE MONOHYDRATE
  3. ALBUTEROL. [Suspect]
     Active Substance: ALBUTEROL
     Dosage: NEBULIZER
  4. PROAIR HFA [Suspect]
     Active Substance: ALBUTEROL SULFATE
     Indication: CHRONIC OBSTRUCTIVE PULMONARY DISEASE
     Dosage: 2 PUFFS EVERY 4 HOURS AS NEEDED
  5. PROAIR HFA [Suspect]
     Active Substance: ALBUTEROL SULFATE
     Indication: ASTHMA
  6. ALBUTEROL. [Suspect]
     Active Substance: ALBUTEROL
     Dosage: SPRAY

REACTIONS (5)
  - Increased bronchial secretion [Unknown]
  - Palpitations [Unknown]
  - Respiratory rate increased [Unknown]
  - Hyperventilation [Unknown]
  - Dyspnoea [Unknown]
